FAERS Safety Report 19941273 (Version 1)
Quarter: 2021Q4

REPORT INFORMATION
  Report Type: Spontaneous
  Country: FR (occurrence: FR)
  Receive Date: 20211011
  Receipt Date: 20211011
  Transmission Date: 20220303
  Serious: Yes (Hospitalization)
  Sender: FDA-Public Use
  Company Number: None

PATIENT
  Age: 75 Year
  Sex: Female
  Weight: 96 kg

DRUGS (1)
  1. FLUOROURACIL [Suspect]
     Active Substance: FLUOROURACIL
     Indication: Colon cancer stage IV
     Dosage: 5600 MILLIGRAM
     Route: 042
     Dates: start: 20201126, end: 20201128

REACTIONS (1)
  - Reversible splenial lesion syndrome [Recovered/Resolved]

NARRATIVE: CASE EVENT DATE: 20201130
